FAERS Safety Report 4502047-3 (Version None)
Quarter: 2004Q4

REPORT INFORMATION
  Report Type: 
  Country: None (occurrence: None)
  Receive Date: 20041116
  Receipt Date: 20041105
  Transmission Date: 20050328
  Serious: Yes (Hospitalization)
  Sender: FDA-Public Use
  Company Number: GB-MERCK-0411USA01027

PATIENT
  Age: 69 Year
  Sex: Male

DRUGS (3)
  1. ZOCOR [Suspect]
     Indication: HYPERCHOLESTEROLAEMIA
     Route: 048
     Dates: end: 20040907
  2. ZESTORETIC [Suspect]
     Indication: HYPERTENSION
     Route: 048
     Dates: end: 20040907
  3. HYPERIUM [Suspect]
     Indication: HYPERTENSION
     Route: 065
     Dates: end: 20040907

REACTIONS (2)
  - PANCREATIC ENZYMES INCREASED [None]
  - PANCREATITIS [None]
